FAERS Safety Report 15741157 (Version 4)
Quarter: 2021Q1

REPORT INFORMATION
  Report Type: Report from Study
  Country: JP (occurrence: JP)
  Receive Date: 20181219
  Receipt Date: 20210317
  Transmission Date: 20210419
  Serious: Yes (Life-Threatening, Hospitalization)
  Sender: FDA-Public Use
  Company Number: JP-GILEAD-2018-0380462

PATIENT
  Age: 34 Year
  Sex: Female

DRUGS (66)
  1. TEICOPLANIN [Suspect]
     Active Substance: TEICOPLANIN
     Dosage: UNK
     Route: 041
     Dates: start: 20170822, end: 20170823
  2. FUNGUARD [Suspect]
     Active Substance: MICAFUNGIN SODIUM
     Indication: PRODUCT USED FOR UNKNOWN INDICATION
     Route: 042
     Dates: start: 20170903, end: 20170905
  3. NORADRENALINE [NOREPINEPHRINE] [Concomitant]
     Active Substance: NOREPINEPHRINE
     Dosage: UNK
     Route: 065
     Dates: start: 20170705, end: 20170916
  4. FUROSEMIDE. [Concomitant]
     Active Substance: FUROSEMIDE
     Route: 065
     Dates: start: 20170707, end: 20170711
  5. FUROSEMIDE. [Concomitant]
     Active Substance: FUROSEMIDE
     Dosage: UNK
     Route: 065
     Dates: start: 20170716, end: 20170724
  6. SODIUM PHOSPHATE [Concomitant]
     Active Substance: SODIUM PHOSPHATE
     Route: 065
     Dates: start: 20170928, end: 20170930
  7. DIAMOX SEQUELS [Concomitant]
     Active Substance: ACETAZOLAMIDE
     Dosage: UNK
     Route: 065
     Dates: start: 20170821, end: 20170823
  8. EMTRICITABINE/TENOFOVIR ALAFENAMIDE [Suspect]
     Active Substance: EMTRICITABINE\TENOFOVIR
     Dosage: 1 DOSAGE FORM, QD
     Route: 048
     Dates: start: 20170822, end: 20170908
  9. TAZOPIPE [Suspect]
     Active Substance: PIPERACILLIN SODIUM\TAZOBACTAM SODIUM
     Dosage: UNK
     Route: 041
     Dates: start: 20170809, end: 20170810
  10. TEICOPLANIN [Suspect]
     Active Substance: TEICOPLANIN
     Dosage: UNK
     Route: 041
     Dates: start: 20170912, end: 20170913
  11. CRAVIT [Suspect]
     Active Substance: LEVOFLOXACIN
     Indication: PRODUCT USED FOR UNKNOWN INDICATION
     Dosage: UNK
     Route: 048
     Dates: start: 20170815, end: 20170816
  12. FLUCONAZOLE. [Suspect]
     Active Substance: FLUCONAZOLE
     Dosage: UNK
     Route: 048
     Dates: start: 20170915, end: 20170919
  13. FUROSEMIDE. [Concomitant]
     Active Substance: FUROSEMIDE
     Dosage: UNK
     Route: 065
     Dates: start: 20170924, end: 20170924
  14. SODIUM PHOSPHATE [Concomitant]
     Active Substance: SODIUM PHOSPHATE
     Dosage: UNK
     Route: 065
     Dates: start: 20170831, end: 20170907
  15. ALDACTONE A [Concomitant]
     Active Substance: SPIRONOLACTONE
     Route: 048
     Dates: start: 20170707, end: 20170810
  16. DENOSINE [GANCICLOVIR] [Concomitant]
     Active Substance: GANCICLOVIR
     Route: 041
     Dates: start: 20170709, end: 20170717
  17. FILGRASTIM BIOSIMILAR 1 [Concomitant]
     Active Substance: FILGRASTIM
     Route: 065
     Dates: start: 20170928, end: 20171003
  18. CEFTRIAXONE NA [Concomitant]
     Active Substance: CEFTRIAXONE
  19. ELVITEGRAVIR/COBICISTAT/EMTRICITABINE/TENOFOVIR ALAFENAMIDE [Suspect]
     Active Substance: COBICISTAT\ELVITEGRAVIR\EMTRICITABINE\TENOFOVIR
     Indication: HIV INFECTION
     Dosage: 1 DOSAGE FORM, QD
     Route: 048
     Dates: start: 20170811, end: 20170822
  20. TIVICAY [Suspect]
     Active Substance: DOLUTEGRAVIR SODIUM
     Indication: HIV INFECTION
     Route: 048
     Dates: start: 20170714, end: 20170810
  21. TAZOPIPE [Suspect]
     Active Substance: PIPERACILLIN SODIUM\TAZOBACTAM SODIUM
     Dosage: UNK
     Route: 041
     Dates: start: 20170824, end: 20170907
  22. FUROSEMIDE. [Concomitant]
     Active Substance: FUROSEMIDE
     Dosage: UNK
     Route: 065
     Dates: start: 20170730, end: 20170804
  23. FUROSEMIDE. [Concomitant]
     Active Substance: FUROSEMIDE
     Dosage: UNK
     Route: 065
     Dates: start: 20170809, end: 20170809
  24. FUROSEMIDE. [Concomitant]
     Active Substance: FUROSEMIDE
     Dosage: UNK
     Route: 065
     Dates: start: 20170812, end: 20170812
  25. FUROSEMIDE. [Concomitant]
     Active Substance: FUROSEMIDE
     Dosage: UNK
     Route: 065
     Dates: start: 20170908, end: 20170908
  26. SODIUM PHOSPHATE [Concomitant]
     Active Substance: SODIUM PHOSPHATE
     Dosage: UNK
     Route: 065
     Dates: start: 20170917, end: 20170917
  27. L?CARBOCYSTEINE [Concomitant]
     Active Substance: CARBOCYSTEINE
     Indication: PROPHYLAXIS
     Route: 048
     Dates: start: 20170726, end: 20170904
  28. AMBROXOL HYDROCHLORIDE [Concomitant]
     Active Substance: AMBROXOL HYDROCHLORIDE
     Route: 048
     Dates: start: 20170726, end: 20170904
  29. DENOSINE [GANCICLOVIR] [Concomitant]
     Active Substance: GANCICLOVIR
     Dosage: UNK
     Route: 041
     Dates: start: 20170825, end: 20170827
  30. DIPRIVAN [Concomitant]
     Active Substance: PROPOFOL
     Indication: PROPHYLAXIS
     Route: 042
     Dates: start: 20170714, end: 20171004
  31. DOBUPUM [Concomitant]
     Active Substance: DOBUTAMINE HYDROCHLORIDE
     Indication: SEPTIC SHOCK
     Route: 042
     Dates: start: 20170713, end: 20170718
  32. HEPARIN [Concomitant]
     Active Substance: HEPARIN SODIUM
     Dosage: UNK
     Route: 042
     Dates: start: 20170817, end: 20170824
  33. HEPARIN [Concomitant]
     Active Substance: HEPARIN SODIUM
     Route: 042
     Dates: start: 20170908, end: 20171003
  34. GASTER [Concomitant]
     Active Substance: FAMOTIDINE
  35. EMTRICITABINE/TENOFOVIR ALAFENAMIDE [Suspect]
     Active Substance: EMTRICITABINE\TENOFOVIR
     Indication: HIV INFECTION
     Dosage: 1 DOSAGE FORM, QD
     Route: 048
     Dates: start: 20170714, end: 20170810
  36. TAZOPIPE [Suspect]
     Active Substance: PIPERACILLIN SODIUM\TAZOBACTAM SODIUM
     Indication: PRODUCT USED FOR UNKNOWN INDICATION
     Dosage: UNK
     Route: 041
     Dates: start: 20170709, end: 20170806
  37. TAZOPIPE [Suspect]
     Active Substance: PIPERACILLIN SODIUM\TAZOBACTAM SODIUM
     Dosage: UNK
     Route: 041
     Dates: start: 20170912, end: 20190915
  38. SODIUM PHOSPHATE [Concomitant]
     Active Substance: SODIUM PHOSPHATE
     Indication: PROPHYLAXIS
     Route: 065
     Dates: start: 20170719, end: 20170721
  39. FILGRASTIM BIOSIMILAR 1 [Concomitant]
     Active Substance: FILGRASTIM
     Indication: PROPHYLAXIS
     Route: 065
     Dates: start: 20170720, end: 20170721
  40. TIVICAY [Suspect]
     Active Substance: DOLUTEGRAVIR SODIUM
     Dosage: 50 MG, QD
     Route: 048
     Dates: start: 20170822, end: 20170908
  41. FLUCONAZOLE. [Suspect]
     Active Substance: FLUCONAZOLE
     Indication: PRODUCT USED FOR UNKNOWN INDICATION
     Dosage: UNK
     Route: 048
     Dates: start: 20170905, end: 20170908
  42. FENTANYL. [Concomitant]
     Active Substance: FENTANYL
     Indication: PROPHYLAXIS
     Route: 065
     Dates: start: 20170705, end: 20171004
  43. DAIPHEN [Concomitant]
     Active Substance: SULFAMETHOXAZOLE\TRIMETHOPRIM
     Dosage: UNK
     Route: 048
     Dates: start: 20170706, end: 20170712
  44. DAIPHEN [Concomitant]
     Active Substance: SULFAMETHOXAZOLE\TRIMETHOPRIM
     Dosage: UNK
     Route: 048
     Dates: start: 20170811, end: 20170816
  45. NEXIUM [Concomitant]
     Active Substance: ESOMEPRAZOLE MAGNESIUM
     Indication: PROPHYLAXIS
     Route: 048
     Dates: start: 20170706, end: 20170904
  46. FAMOTIDINE. [Concomitant]
     Active Substance: FAMOTIDINE
     Indication: PROPHYLAXIS
     Route: 048
     Dates: start: 20170905, end: 20170911
  47. DIAMOX SEQUELS [Concomitant]
     Active Substance: ACETAZOLAMIDE
     Dosage: UNK
     Route: 065
     Dates: start: 20170711, end: 20170711
  48. HEPARIN [Concomitant]
     Active Substance: HEPARIN SODIUM
     Indication: PROPHYLAXIS
     Route: 042
     Dates: start: 20170712, end: 20170810
  49. FUROSEMIDE. [Concomitant]
     Active Substance: FUROSEMIDE
     Dosage: UNK
     Route: 065
     Dates: start: 20170904, end: 20170904
  50. BIOFERMIN R [Concomitant]
     Active Substance: DIETARY SUPPLEMENT\PROBIOTICS
     Indication: PROPHYLAXIS
     Route: 048
     Dates: start: 20170719, end: 20170904
  51. SODIUM PHOSPHATE [Concomitant]
     Active Substance: SODIUM PHOSPHATE
     Route: 065
     Dates: start: 20170921, end: 20170921
  52. ONOACT [Concomitant]
     Active Substance: LANDIOLOL HYDROCHLORIDE
     Route: 041
     Dates: start: 20170718, end: 20170731
  53. PANTOL [CARBAMAZEPINE] [Concomitant]
     Route: 065
     Dates: start: 20170716, end: 20170809
  54. PANTOL [CARBAMAZEPINE] [Concomitant]
     Route: 065
     Dates: start: 20170912, end: 20171005
  55. TIVICAY [Suspect]
     Active Substance: DOLUTEGRAVIR SODIUM
     Dosage: 100 MG, QD
     Route: 048
     Dates: start: 20170920, end: 20171005
  56. TEICOPLANIN [Suspect]
     Active Substance: TEICOPLANIN
     Dosage: UNK
     Route: 041
     Dates: start: 20170901, end: 20170906
  57. ONDANSETRON [Concomitant]
     Active Substance: ONDANSETRON
     Indication: PROPHYLAXIS
     Dosage: UNK
     Route: 042
     Dates: start: 20170703, end: 20170925
  58. DAIPHEN [Concomitant]
     Active Substance: SULFAMETHOXAZOLE\TRIMETHOPRIM
     Dosage: UNK
     Route: 048
     Dates: start: 20170822, end: 20170824
  59. MIYA?BM [Concomitant]
     Active Substance: CLOSTRIDIUM BUTYRICUM SPORES STRAIN M-55
     Indication: PROPHYLAXIS
     Route: 048
     Dates: start: 20170719, end: 20170904
  60. SODIUM PHOSPHATE [Concomitant]
     Active Substance: SODIUM PHOSPHATE
     Dosage: UNK
     Route: 065
     Dates: start: 20170810, end: 20170810
  61. CARBAZOCHROME SODIUM SULFONATE [Concomitant]
     Active Substance: CARBAZOCHROME SODIUM SULFONATE
  62. TEICOPLANIN [Suspect]
     Active Substance: TEICOPLANIN
     Indication: PRODUCT USED FOR UNKNOWN INDICATION
     Dosage: UNK
     Route: 041
     Dates: start: 20170712, end: 20170717
  63. CRAVIT [Suspect]
     Active Substance: LEVOFLOXACIN
     Dosage: UNK
     Route: 048
     Dates: start: 20170830, end: 20170904
  64. SODIUM PHOSPHATE [Concomitant]
     Active Substance: SODIUM PHOSPHATE
     Dosage: UNK
     Route: 065
     Dates: start: 20170828, end: 20170828
  65. AMBROXOL HYDROCHLORIDE [Concomitant]
     Active Substance: AMBROXOL HYDROCHLORIDE
     Indication: PROPHYLAXIS
     Dosage: UNK
     Route: 048
     Dates: start: 20170726, end: 20170904
  66. DIAMOX SEQUELS [Concomitant]
     Active Substance: ACETAZOLAMIDE
     Dosage: UNK
     Route: 065
     Dates: start: 20170724, end: 20170728

REACTIONS (5)
  - Diarrhoea [Recovered/Resolved]
  - Organising pneumonia [Not Recovered/Not Resolved]
  - Kaposi^s sarcoma [Recovering/Resolving]
  - Pseudomonas infection [Not Recovered/Not Resolved]
  - Renal impairment [Not Recovered/Not Resolved]

NARRATIVE: CASE EVENT DATE: 20170731
